FAERS Safety Report 23473804 (Version 7)
Quarter: 2024Q3

REPORT INFORMATION
  Report Type: Report from Study
  Country: US (occurrence: US)
  Receive Date: 20240203
  Receipt Date: 20240710
  Transmission Date: 20241017
  Serious: Yes (Hospitalization, Other)
  Sender: UCB
  Company Number: US-UCBSA-2024004568

PATIENT
  Sex: Male
  Weight: 60.6 kg

DRUGS (5)
  1. FINTEPLA [Suspect]
     Active Substance: FENFLURAMINE
     Indication: Lennox-Gastaut syndrome
     Dosage: 0.3 MILLIGRAM/KILOGRAM/DAY (TOTAL:17.6 MG/DAY)
     Route: 048
     Dates: start: 20220805
  2. FINTEPLA [Suspect]
     Active Substance: FENFLURAMINE
     Dosage: 0.43 MILLIGRAM/KILOGRAM/DAY (TOTAL:22 MG/DAY)
     Route: 048
  3. FINTEPLA [Suspect]
     Active Substance: FENFLURAMINE
     Dosage: 6 MILLILITER, 2X/DAY (BID) (0.49 MG/KG/DAY; TOTAL: 26.4 MG/DAY)
     Route: 048
  4. FINTEPLA [Suspect]
     Active Substance: FENFLURAMINE
     Dosage: 6 MILLILITER, 2X/DAY (BID)
     Route: 048
  5. FINTEPLA [Suspect]
     Active Substance: FENFLURAMINE
     Dosage: 6 MILLILITER, 2X/DAY (BID)
     Route: 048

REACTIONS (7)
  - Respiratory tract infection [Recovered/Resolved]
  - Seizure [Recovered/Resolved]
  - Pyrexia [Recovered/Resolved]
  - Pulmonary arterial pressure increased [Not Recovered/Not Resolved]
  - Tricuspid valve incompetence [Unknown]
  - Right ventricular dysfunction [Unknown]
  - Urinary tract infection [Recovered/Resolved]

NARRATIVE: CASE EVENT DATE: 20240101
